FAERS Safety Report 8083743-0 (Version None)
Quarter: 2012Q1

REPORT INFORMATION
  Report Type: 
  Country: None (occurrence: None)
  Receive Date: 20120127
  Receipt Date: 20110124
  Transmission Date: 20120608
  Serious: No
  Sender: FDA-Public Use
  Company Number: US-ABBOTT-11P-163-0700112-00

PATIENT
  Age: 37 Year
  Sex: Female

DRUGS (5)
  1. HUMIRA [Suspect]
     Indication: RHEUMATOID ARTHRITIS
     Dates: start: 20101101
  2. ARAVA [Concomitant]
     Indication: RHEUMATOID ARTHRITIS
  3. KETOROLAC TROMETHAMINE [Concomitant]
     Indication: MIGRAINE
  4. BENICAR [Concomitant]
     Indication: BLOOD PRESSURE
  5. ALLEGRA [Concomitant]
     Indication: HYPERSENSITIVITY

REACTIONS (3)
  - BLOOD PRESSURE INCREASED [None]
  - WEIGHT INCREASED [None]
  - FLUID RETENTION [None]
